FAERS Safety Report 6690459-1 (Version None)
Quarter: 2010Q2

REPORT INFORMATION
  Report Type: 
  Country: None (occurrence: None)
  Receive Date: 20100421
  Receipt Date: 20100413
  Transmission Date: 20101027
  Serious: Yes (Death, Hospitalization)
  Sender: FDA-Public Use
  Company Number: MY-CELGENEUS-101-21880-10040002

PATIENT
  Sex: Male
  Weight: 58 kg

DRUGS (8)
  1. REVLIMID [Suspect]
     Route: 048
     Dates: start: 20091207, end: 20100323
  2. DEXAMETHASONE [Concomitant]
     Route: 065
     Dates: start: 20091202, end: 20100323
  3. INDOPAMINE [Concomitant]
     Indication: BLOOD PRESSURE
     Route: 065
     Dates: start: 20091025, end: 20100323
  4. INDOPAMINE [Concomitant]
  5. PRAZOSIN HCL [Concomitant]
     Indication: BLOOD PRESSURE
     Route: 065
     Dates: start: 20091030, end: 20100323
  6. AMLODIPINE [Concomitant]
     Indication: BLOOD PRESSURE
     Route: 065
     Dates: start: 20091021, end: 20100323
  7. PERINDOPRIL [Concomitant]
     Indication: BLOOD PRESSURE
     Route: 065
     Dates: start: 20091026, end: 20100323
  8. ASPIRIN [Concomitant]
     Indication: BLOOD PRESSURE
     Route: 065
     Dates: start: 20091207, end: 20100323

REACTIONS (5)
  - ACUTE CORONARY SYNDROME [None]
  - H1N1 INFLUENZA [None]
  - LOSS OF CONSCIOUSNESS [None]
  - PNEUMONIA [None]
  - SUDDEN CARDIAC DEATH [None]
